FAERS Safety Report 10094347 (Version 2)
Quarter: 2014Q2

REPORT INFORMATION
  Report Type: Spontaneous
  Country: US (occurrence: US)
  Receive Date: 20140422
  Receipt Date: 20140604
  Transmission Date: 20141212
  Serious: Yes (Hospitalization, Other)
  Sender: FDA-Public Use
  Company Number: US-ASTRAZENECA-2014SE26256

PATIENT
  Age: 72 Year
  Sex: Female
  Weight: 65.3 kg

DRUGS (3)
  1. SYMBICORT [Suspect]
     Indication: CHRONIC OBSTRUCTIVE PULMONARY DISEASE
     Dosage: 160/4.5 MCG, 2 PUFFS, TWO TIMES A DAY
     Route: 055
     Dates: start: 2008
  2. LASIX [Concomitant]
  3. NEBULIZERS [Concomitant]

REACTIONS (9)
  - Dyspnoea [Unknown]
  - Myocardial infarction [Unknown]
  - Fall [Unknown]
  - Blindness [Recovering/Resolving]
  - Cerebrovascular accident [Unknown]
  - Head injury [Unknown]
  - Peripheral swelling [Unknown]
  - Circumstance or information capable of leading to medication error [Unknown]
  - Off label use [Unknown]
